FAERS Safety Report 7138895-3 (Version None)
Quarter: 2010Q4

REPORT INFORMATION
  Report Type: 
  Country: None (occurrence: None)
  Receive Date: 20101206
  Receipt Date: 20100309
  Transmission Date: 20110411
  Serious: No
  Sender: FDA-Public Use
  Company Number: US-ABBOTT-09P-163-0613966-00

PATIENT
  Age: 5 Year
  Sex: Female
  Weight: 20.43 kg

DRUGS (2)
  1. OMNICEF [Suspect]
     Indication: SINUSITIS
     Dosage: 250/5ML 1 AND 1/2 TSP EVERY DAY
     Dates: start: 20091127, end: 20091204
  2. BIAXIN [Concomitant]
     Indication: SINUSITIS

REACTIONS (1)
  - DRUG INEFFECTIVE [None]
